FAERS Safety Report 4621848-4 (Version None)
Quarter: 2005Q1

REPORT INFORMATION
  Report Type: 
  Country: None (occurrence: None)
  Receive Date: 20050329
  Receipt Date: 20050322
  Transmission Date: 20050727
  Serious: Yes (Hospitalization)
  Sender: FDA-Public Use
  Company Number: DE-BRISTOL-MYERS SQUIBB COMPANY-12907275

PATIENT
  Age: 68 Year

DRUGS (3)
  1. PACLITAXEL [Suspect]
     Indication: BLADDER CANCER
     Route: 042
  2. GEMCITABINE [Suspect]
     Indication: BLADDER CANCER
     Route: 042
  3. DEXAMETHASONE [Suspect]

REACTIONS (2)
  - GASTROINTESTINAL HAEMORRHAGE [None]
  - HAEMOGLOBIN DECREASED [None]
